FAERS Safety Report 4782707-X (Version None)
Quarter: 2005Q3

REPORT INFORMATION
  Report Type: 
  Country: None (occurrence: None)
  Receive Date: 20050929
  Receipt Date: 20050804
  Transmission Date: 20060218
  Serious: Yes (Hospitalization, Disabling)
  Sender: FDA-Public Use
  Company Number: 413748

PATIENT
  Age: 82 Year
  Sex: Female
  Weight: 71.4 kg

DRUGS (6)
  1. COREG [Suspect]
     Dosage: 6.25MG TWICE PER DAY
     Route: 048
     Dates: start: 20050714, end: 20050802
  2. SYNTHROID [Concomitant]
     Route: 048
  3. PLAVIX [Concomitant]
     Route: 048
  4. ASPIRIN [Concomitant]
     Route: 048
  5. NITRO-DUR [Concomitant]
     Route: 061
  6. MICARDIS HCT [Concomitant]
     Route: 048

REACTIONS (1)
  - HEADACHE [None]
